FAERS Safety Report 10019777 (Version 2)
Quarter: 2014Q1

REPORT INFORMATION
  Report Type: Spontaneous
  Country: US (occurrence: US)
  Receive Date: 20140318
  Receipt Date: 20140318
  Transmission Date: 20141002
  Serious: No
  Sender: FDA-Public Use
  Company Number: US-GALDERMA-US13003986

PATIENT
  Age: 82 Year
  Sex: Female

DRUGS (12)
  1. MIRVASO (BRIMONIDINE) TOPICAL GEL, 0.33% [Suspect]
     Indication: ROSACEA
     Dosage: 0.33%
     Route: 061
     Dates: start: 20131121, end: 20131126
  2. PREDNISONE [Concomitant]
     Route: 048
     Dates: start: 2011
  3. PREDNISONE [Concomitant]
     Dosage: 3 MG
     Route: 048
     Dates: start: 201311
  4. JANE IREDALE MINERAL VEIL AND MAKEUP [Concomitant]
     Route: 061
  5. SIMPLE CLEANSING AND MAKEUP REMOVAL TOWELETTES [Concomitant]
     Indication: THERAPEUTIC SKIN CARE TOPICAL
     Route: 061
  6. JANE IREDALE MOISTURIZER [Concomitant]
     Indication: DRY SKIN PROPHYLAXIS
     Route: 061
  7. OMEPRAZOLE [Concomitant]
     Dosage: 40 MG
     Route: 048
     Dates: start: 20131123
  8. CRESTOR [Concomitant]
     Dosage: 10 MG
     Route: 048
  9. LISINOPRIL [Concomitant]
     Dosage: 20 MG
     Route: 048
     Dates: start: 2011
  10. IC AMLODIPINE [Concomitant]
     Route: 048
  11. ASPIRIN [Concomitant]
  12. FISH OIL [Concomitant]

REACTIONS (4)
  - Condition aggravated [Recovered/Resolved]
  - Rash papular [Recovered/Resolved]
  - Erythema [Recovered/Resolved]
  - Drug ineffective [Recovered/Resolved]
